FAERS Safety Report 10586731 (Version 1)
Quarter: 2014Q4

REPORT INFORMATION
  Report Type: Spontaneous
  Country: US (occurrence: None)
  Receive Date: 20141114
  Receipt Date: 20141114
  Transmission Date: 20150529
  Serious: Yes (Disabling)
  Sender: FDA-Public Use
  Company Number: None

PATIENT
  Age: 69 Year
  Sex: Female
  Weight: 45.36 kg

DRUGS (1)
  1. IBANDRONATE SODIUM 150 MG MYLAN [Suspect]
     Active Substance: IBANDRONATE SODIUM
     Indication: OSTEOPOROSIS
     Dosage: 1 PILL, MONTHLY, TAKEN BY MOUTH
     Route: 048
     Dates: start: 20140807, end: 20141007

REACTIONS (15)
  - Back pain [None]
  - Constipation [None]
  - Pyrexia [None]
  - Dizziness [None]
  - Nausea [None]
  - Chest pain [None]
  - Chest discomfort [None]
  - Pain [None]
  - Arthralgia [None]
  - Abdominal distension [None]
  - Tenderness [None]
  - Chills [None]
  - Palpitations [None]
  - Dyspepsia [None]
  - Abdominal pain [None]

NARRATIVE: CASE EVENT DATE: 20141008
